FAERS Safety Report 21018449 (Version 2)
Quarter: 2022Q4

REPORT INFORMATION
  Report Type: Spontaneous
  Country: SA (occurrence: SA)
  Receive Date: 20220628
  Receipt Date: 20221004
  Transmission Date: 20230113
  Serious: Yes (Other)
  Sender: FDA-Public Use
  Company Number: SA-NOVARTISPH-NVSC2022SA144494

PATIENT
  Sex: Female

DRUGS (1)
  1. HYRIMOZ [Suspect]
     Active Substance: ADALIMUMAB-ADAZ
     Indication: Rheumatoid arthritis
     Dosage: 40 MG
     Route: 065

REACTIONS (4)
  - Condition aggravated [Unknown]
  - Pain [Unknown]
  - Joint stiffness [Unknown]
  - Hypersensitivity [Recovered/Resolved]
